FAERS Safety Report 21513925 (Version 1)
Quarter: 2022Q4

REPORT INFORMATION
  Report Type: Spontaneous
  Country: JP (occurrence: JP)
  Receive Date: 20221027
  Receipt Date: 20221027
  Transmission Date: 20230113
  Serious: Yes (Other)
  Sender: FDA-Public Use
  Company Number: JP-Clinigen Group PLC/ Clinigen Healthcare Ltd-JP-CLGN-22-00329

PATIENT
  Sex: Female

DRUGS (2)
  1. DEXRAZOXANE [Suspect]
     Active Substance: DEXRAZOXANE
     Indication: Chemotherapy cardiotoxicity attenuation
     Route: 041
     Dates: start: 20220719, end: 20220720
  2. DEXRAZOXANE [Suspect]
     Active Substance: DEXRAZOXANE
     Route: 041
     Dates: start: 20221004, end: 20221005

REACTIONS (1)
  - Off label use [Unknown]
